FAERS Safety Report 10360241 (Version 1)
Quarter: 2014Q3

REPORT INFORMATION
  Report Type: Report from Study
  Country: BR (occurrence: BR)
  Receive Date: 20140804
  Receipt Date: 20140804
  Transmission Date: 20150326
  Serious: Yes (Hospitalization)
  Sender: FDA-Public Use
  Company Number: PHHY2014BR095316

PATIENT
  Age: 92 Year
  Sex: Female
  Weight: 42 kg

DRUGS (2)
  1. EXELON PATCH [Suspect]
     Active Substance: RIVASTIGMINE
     Indication: ANXIETY
     Dosage: 4.6 MG (PATCH 5 CM2), DAILY
  2. EXELON PATCH [Suspect]
     Active Substance: RIVASTIGMINE
     Indication: DEMENTIA ALZHEIMER^S TYPE

REACTIONS (2)
  - Respiratory disorder [Unknown]
  - Pain [Unknown]
